FAERS Safety Report 8063856-X (Version None)
Quarter: 2012Q1

REPORT INFORMATION
  Report Type: 
  Country: None (occurrence: None)
  Receive Date: 20120117
  Receipt Date: 20120103
  Transmission Date: 20120608
  Serious: Yes (Death)
  Sender: FDA-Public Use
  Company Number: B0773618A

PATIENT
  Age: 74 Year
  Sex: Female

DRUGS (10)
  1. CARVEDILOL [Suspect]
     Dosage: UNK/UNK/ORAL
     Route: 048
  2. TEMAZEPAM [Suspect]
     Dosage: UNK/UNK/ORAL
     Route: 048
  3. BUMETANIDE [Suspect]
     Dosage: UNK/UNK/ORAL
     Route: 048
  4. POTASSIUM CHLORIDE [Suspect]
     Dosage: UNK/UNK/ORAL
     Route: 048
  5. CLOPIDOGREL [Suspect]
     Dosage: UNK/UNK/ORAL
     Route: 048
  6. SIMVASTATIN [Suspect]
     Dosage: UNK/UNK/ORAL
     Route: 048
  7. SODIUM HYPOCHLORITE (FORMULATION UNKNOWN) (GENERIC) (SODIUM HYPOCHLORI [Suspect]
     Dosage: UNK/UNK/ORAL
     Route: 048
  8. LISINOPRIL [Suspect]
     Dosage: UNK/UNK/ORAL
     Route: 048
  9. RISPERIDONE [Suspect]
     Dosage: UNK/UNK/ORAL
     Route: 048
  10. THYROXINE SODIUM (FORMULATION UNKNOWN) (GENERIC) (LEVOTHYROXINE SODIUM [Suspect]
     Dosage: UNK/UNK/ORAL
     Route: 048

REACTIONS (1)
  - COMPLETED SUICIDE [None]
